FAERS Safety Report 17915501 (Version 1)
Quarter: 2020Q2

REPORT INFORMATION
  Report Type: Spontaneous
  Country: US (occurrence: US)
  Receive Date: 20200617
  Receipt Date: 20200617
  Transmission Date: 20200714
  Serious: Yes (Death, Life-Threatening)
  Sender: FDA-Public Use
  Company Number: None

PATIENT
  Age: 55 Year
  Sex: Male
  Weight: 96 kg

DRUGS (1)
  1. VANCOMYCIN 500MG X 2-1.0GM [Suspect]
     Active Substance: VANCOMYCIN HYDROCHLORIDE
     Indication: INFECTION
     Route: 042
     Dates: start: 20200515, end: 20200515

REACTIONS (6)
  - Dialysis [None]
  - Burning sensation [None]
  - Unresponsive to stimuli [None]
  - Back pain [None]
  - Pyrexia [None]
  - Flank pain [None]

NARRATIVE: CASE EVENT DATE: 20200515
